FAERS Safety Report 18183643 (Version 1)
Quarter: 2020Q3

REPORT INFORMATION
  Report Type: Spontaneous
  Country: US (occurrence: US)
  Receive Date: 20200822
  Receipt Date: 20200822
  Transmission Date: 20201103
  Serious: Yes (Hospitalization, Other)
  Sender: FDA-Public Use
  Company Number: US-UNITED THERAPEUTICS-UNT-2020-012187

PATIENT
  Age: 32 Year
  Sex: Female

DRUGS (1)
  1. REMODULIN [Suspect]
     Active Substance: TREPROSTINIL
     Indication: PULMONARY ARTERIAL HYPERTENSION
     Dosage: UNK, CONTINUING
     Route: 041

REACTIONS (4)
  - Vascular device infection [Recovered/Resolved]
  - Atrial thrombosis [Recovered/Resolved]
  - Device related thrombosis [Recovered/Resolved]
  - Staphylococcal infection [Recovered/Resolved]
